FAERS Safety Report 23774070 (Version 2)
Quarter: 2024Q2

REPORT INFORMATION
  Report Type: Spontaneous
  Country: CO (occurrence: CO)
  Receive Date: 20240423
  Receipt Date: 20240430
  Transmission Date: 20240716
  Serious: Yes (Other)
  Sender: FDA-Public Use
  Company Number: CO-AMERICAN REGENT INC-2024001375

PATIENT
  Sex: Female
  Weight: 62.5 kg

DRUGS (1)
  1. FERINJECT [Suspect]
     Active Substance: FERRIC CARBOXYMALTOSE
     Indication: Iron deficiency anaemia
     Dosage: ADMINISTRATION OF 5 DOSES OF FERINJECT, 500 MG EVERY MONTH (500 MG,1 IN 1 M)
     Route: 042
     Dates: start: 20231020, end: 20240403

REACTIONS (2)
  - Serum ferritin increased [Unknown]
  - Product prescribing error [Unknown]

NARRATIVE: CASE EVENT DATE: 20231020
